FAERS Safety Report 25371153 (Version 2)
Quarter: 2025Q3

REPORT INFORMATION
  Report Type: Report from Study
  Country: US (occurrence: US)
  Receive Date: 20250529
  Receipt Date: 20250918
  Transmission Date: 20251020
  Serious: Yes (Hospitalization, Other)
  Sender: ABBVIE
  Company Number: US-ABBVIE-6298240

PATIENT
  Age: 50 Year
  Sex: Male

DRUGS (2)
  1. RINVOQ [Suspect]
     Active Substance: UPADACITINIB
     Indication: Crohn^s disease
     Route: 048
     Dates: start: 20250226
  2. RINVOQ [Suspect]
     Active Substance: UPADACITINIB
     Indication: Crohn^s disease
     Route: 048
     Dates: start: 2025

REACTIONS (9)
  - Sepsis [Not Recovered/Not Resolved]
  - Abdominal infection [Recovered/Resolved]
  - Infection [Recovered/Resolved]
  - Pneumonia [Not Recovered/Not Resolved]
  - Abdominal infection [Not Recovered/Not Resolved]
  - Thrombosis [Unknown]
  - Gastrointestinal infection [Unknown]
  - Syncope [Unknown]
  - Cardiac arrest [Unknown]

NARRATIVE: CASE EVENT DATE: 20250101
